FAERS Safety Report 16478525 (Version 1)
Quarter: 2019Q2

REPORT INFORMATION
  Report Type: Spontaneous
  Country: US (occurrence: US)
  Receive Date: 20190626
  Receipt Date: 20190626
  Transmission Date: 20190711
  Serious: No
  Sender: FDA-Public Use
  Company Number: US-PFIZER INC-2019268818

PATIENT
  Age: 69 Year
  Sex: Male

DRUGS (1)
  1. VENLAFAXINE HCL [Suspect]
     Active Substance: VENLAFAXINE HYDROCHLORIDE
     Indication: ANXIETY
     Dosage: 75 MG, DAILY

REACTIONS (4)
  - Nervousness [Unknown]
  - Drug hypersensitivity [Unknown]
  - Anxiety [Unknown]
  - Feeling jittery [Unknown]
